FAERS Safety Report 23843340 (Version 2)
Quarter: 2024Q2

REPORT INFORMATION
  Report Type: Spontaneous
  Country: TH (occurrence: TH)
  Receive Date: 20240510
  Receipt Date: 20240625
  Transmission Date: 20240716
  Serious: Yes (Hospitalization, Other)
  Sender: FDA-Public Use
  Company Number: TH-002147023-NVSC2024TH096114

PATIENT

DRUGS (2)
  1. RUXOLITINIB [Suspect]
     Active Substance: RUXOLITINIB
     Indication: Myelofibrosis
     Dosage: 20 MG, BID
     Route: 065
     Dates: start: 20220623
  2. AZACITIDINE [Suspect]
     Active Substance: AZACITIDINE
     Indication: Product used for unknown indication
     Dosage: UNK
     Route: 065

REACTIONS (10)
  - Weight increased [Unknown]
  - Spinal cord compression [Unknown]
  - Myelopathy [Unknown]
  - Haemoglobin decreased [Unknown]
  - Blood lactate dehydrogenase increased [Unknown]
  - White blood cell count increased [Unknown]
  - Splenomegaly [Unknown]
  - Chloroma [Unknown]
  - Paraplegia [Unknown]
  - Metastases to bone [Unknown]

NARRATIVE: CASE EVENT DATE: 20231130
